FAERS Safety Report 24775828 (Version 1)
Quarter: 2024Q4

REPORT INFORMATION
  Report Type: Spontaneous
  Country: JP (occurrence: JP)
  Receive Date: 20241226
  Receipt Date: 20241226
  Transmission Date: 20250115
  Serious: No
  Sender: ALKEM
  Company Number: JP-ALKEM LABORATORIES LIMITED-JP-ALKEM-2024-15446

PATIENT
  Age: 59 Year
  Sex: Male

DRUGS (9)
  1. AZATHIOPRINE [Suspect]
     Active Substance: AZATHIOPRINE
     Indication: Myositis
     Dosage: UNK
     Route: 065
  2. AZATHIOPRINE [Suspect]
     Active Substance: AZATHIOPRINE
     Indication: Cholangitis
  3. MYCOPHENOLATE MOFETIL [Suspect]
     Active Substance: MYCOPHENOLATE MOFETIL
     Indication: Myositis
     Dosage: 1000 MILLIGRAM
     Route: 065
  4. MYCOPHENOLATE MOFETIL [Suspect]
     Active Substance: MYCOPHENOLATE MOFETIL
     Indication: Cholangitis
     Dosage: 2000 MILLIGRAM
     Route: 065
  5. MEROPENEM [Suspect]
     Active Substance: MEROPENEM
     Indication: Cholangitis acute
     Dosage: UNK
     Route: 065
  6. PREDNISOLONE [Suspect]
     Active Substance: PREDNISOLONE
     Indication: Myositis
     Dosage: 30 MILLIGRAM
     Route: 065
  7. PREDNISOLONE [Suspect]
     Active Substance: PREDNISOLONE
     Indication: Cholangitis
     Dosage: 60 MILLIGRAM
     Route: 065
  8. URSODIOL [Concomitant]
     Active Substance: URSODIOL
     Indication: Myositis
     Dosage: 300 MILLIGRAM
     Route: 065
  9. URSODIOL [Concomitant]
     Active Substance: URSODIOL
     Indication: Cholangitis
     Dosage: 600 MILLIGRAM, QD
     Route: 065

REACTIONS (1)
  - Therapy non-responder [Unknown]
